FAERS Safety Report 24584825 (Version 1)
Quarter: 2024Q4

REPORT INFORMATION
  Report Type: Spontaneous
  Country: CA (occurrence: CA)
  Receive Date: 20241106
  Receipt Date: 20241106
  Transmission Date: 20250114
  Serious: Yes (Other)
  Sender: PHARMACOSMOS A/S
  Company Number: None

PATIENT
  Age: 82 Year
  Sex: Male
  Weight: 65 kg

DRUGS (1)
  1. MONOFERRIC [Suspect]
     Active Substance: FERRIC DERISOMALTOSE
     Indication: Product used for unknown indication

REACTIONS (4)
  - Oxygen saturation decreased [Recovering/Resolving]
  - Heart rate decreased [Recovering/Resolving]
  - Femoral pulse decreased [Recovering/Resolving]
  - Loss of consciousness [Recovering/Resolving]
